FAERS Safety Report 6999269-9 (Version None)
Quarter: 2010Q3

REPORT INFORMATION
  Report Type: 
  Country: None (occurrence: None)
  Receive Date: 20100920
  Receipt Date: 20100107
  Transmission Date: 20110219
  Serious: Yes (Hospitalization)
  Sender: FDA-Public Use
  Company Number: US-ASTRAZENECA-2010SE00699

PATIENT
  Sex: Female

DRUGS (4)
  1. SEROQUEL [Suspect]
     Indication: OBSESSIVE-COMPULSIVE DISORDER
     Route: 048
     Dates: start: 20090901, end: 20090901
  2. SEROQUEL [Suspect]
     Indication: DEPRESSION
     Route: 048
     Dates: start: 20090901, end: 20090901
  3. LUVOX [Concomitant]
     Dates: end: 20090901
  4. TRAZODONE HCL [Concomitant]
     Dates: end: 20100107

REACTIONS (3)
  - DYSPHEMIA [None]
  - MUSCLE TWITCHING [None]
  - TREMOR [None]
